FAERS Safety Report 4796383-3 (Version None)
Quarter: 2005Q3

REPORT INFORMATION
  Report Type: 
  Country: None (occurrence: None)
  Receive Date: 20050916
  Receipt Date: 20050805
  Transmission Date: 20060218
  Serious: Yes (Hospitalization, Other)
  Sender: FDA-Public Use
  Company Number: US-JNJFOC-20050502252

PATIENT
  Age: 45 Year
  Sex: Female
  Weight: 68.4932 kg

DRUGS (3)
  1. ORTHO EVRA [Suspect]
     Indication: MENSTRUATION IRREGULAR
     Dosage: 1 DOSE(S), 3 IN 4 WEEK, TRANSDERMAL
     Route: 062
     Dates: start: 20030408, end: 20040410
  2. MOTRIN [Concomitant]
  3. TYLENOL [Concomitant]

REACTIONS (1)
  - TRANSVERSE SINUS THROMBOSIS [None]
